FAERS Safety Report 10146164 (Version 1)
Quarter: 2014Q2

REPORT INFORMATION
  Report Type: Spontaneous
  Country: US (occurrence: None)
  Receive Date: 20140430
  Receipt Date: 20140430
  Transmission Date: 20141212
  Serious: Yes (Hospitalization)
  Sender: FDA-Public Use
  Company Number: None

PATIENT
  Age: 56 Year
  Sex: Female

DRUGS (6)
  1. PIPERACILLIN/TAZOBACTAM [Suspect]
     Indication: CELLULITIS
     Dosage: 4.5 GRAMS EVERY 8 HOURS IV
     Route: 042
     Dates: start: 20130830, end: 20130903
  2. VANCOMYCIN [Concomitant]
  3. ENOXAPARIN [Concomitant]
  4. ACETAMINOPHEN [Concomitant]
  5. LEVOTHYROXINE [Concomitant]
  6. PRAVASTATIN [Concomitant]

REACTIONS (2)
  - Pyrexia [None]
  - Condition aggravated [None]
